FAERS Safety Report 23263232 (Version 1)
Quarter: 2023Q4

REPORT INFORMATION
  Report Type: Spontaneous
  Country: US (occurrence: US)
  Receive Date: 20231205
  Receipt Date: 20231205
  Transmission Date: 20240109
  Serious: No
  Sender: FDA-Public Use
  Company Number: US-HALOZYME THERAPEUTICS, INC.-2023-US-TX -03575

PATIENT

DRUGS (1)
  1. XYOSTED [Suspect]
     Active Substance: TESTOSTERONE ENANTHATE
     Indication: Product used for unknown indication
     Dosage: 75 MILLIGRAM, Q 1 WK
     Route: 058

REACTIONS (3)
  - Injection site pruritus [None]
  - Skin discolouration [None]
  - Product dose omission issue [None]

NARRATIVE: CASE EVENT DATE: 20230827
